FAERS Safety Report 12332782 (Version 4)
Quarter: 2017Q4

REPORT INFORMATION
  Report Type: Spontaneous
  Country: US (occurrence: US)
  Receive Date: 20160504
  Receipt Date: 20171027
  Transmission Date: 20180320
  Serious: No
  Sender: FDA-Public Use
  Company Number: US-ROCHE-1700099

PATIENT
  Age: 77 Year
  Sex: Male

DRUGS (3)
  1. WARFARIN [Concomitant]
     Active Substance: WARFARIN
  2. FISH OIL [Concomitant]
     Active Substance: FISH OIL
  3. ESBRIET [Suspect]
     Active Substance: PIRFENIDONE
     Indication: IDIOPATHIC PULMONARY FIBROSIS
     Route: 048
     Dates: start: 20150423

REACTIONS (4)
  - Erectile dysfunction [Unknown]
  - Fatigue [Unknown]
  - Insomnia [Unknown]
  - Ageusia [Unknown]

NARRATIVE: CASE EVENT DATE: 20150423
